FAERS Safety Report 4366581-1 (Version None)
Quarter: 2004Q2

REPORT INFORMATION
  Report Type: 
  Country: None (occurrence: None)
  Receive Date: 20040527
  Receipt Date: 20040524
  Transmission Date: 20050107
  Serious: Yes (Other)
  Sender: FDA-Public Use
  Company Number: US-GLAXOSMITHKLINE-A0511889A

PATIENT
  Age: 22 Year
  Sex: Female

DRUGS (3)
  1. WELLBUTRIN [Suspect]
     Indication: DEPRESSION
     Route: 048
     Dates: end: 20040520
  2. PAXIL CR [Suspect]
     Indication: DRUG USE FOR UNKNOWN INDICATION
  3. BIRTH CONTROL PILL [Concomitant]

REACTIONS (4)
  - GRAND MAL CONVULSION [None]
  - LIBIDO DECREASED [None]
  - MEDICATION ERROR [None]
  - MOOD ALTERED [None]
